FAERS Safety Report 5146790-4 (Version None)
Quarter: 2006Q4

REPORT INFORMATION
  Report Type: 
  Country: None (occurrence: None)
  Receive Date: 20061109
  Receipt Date: 20060117
  Transmission Date: 20070319
  Serious: Yes (Hospitalization, Other)
  Sender: FDA-Public Use
  Company Number: US-NOVOPROD-250199

PATIENT
  Age: 55 Year
  Sex: Female
  Weight: 84 kg

DRUGS (10)
  1. ACTIVELLA [Suspect]
     Indication: HORMONE REPLACEMENT THERAPY
     Dosage: UNKNOWN
     Dates: start: 20020901, end: 20031124
  2. PREMPRO [Suspect]
     Indication: HORMONE REPLACEMENT THERAPY
     Dosage: 0.625 MG/2.5 MG
     Route: 048
     Dates: start: 19970425, end: 20021101
  3. NPH INSULIN [Concomitant]
     Indication: ILL-DEFINED DISORDER
     Dosage: UNKNOWN
  4. XANAX [Concomitant]
     Indication: ILL-DEFINED DISORDER
     Dosage: .25 MG, QD
     Route: 048
     Dates: start: 19930101, end: 19970101
  5. ELAVIL                             /00002202/ [Concomitant]
     Indication: ILL-DEFINED DISORDER
     Dosage: 25 MG, QD
     Route: 048
     Dates: start: 19940101
  6. PAXIL [Concomitant]
     Indication: ILL-DEFINED DISORDER
     Dosage: 20 MG, QD
     Route: 048
     Dates: start: 19960101
  7. ALTACE [Concomitant]
     Indication: ILL-DEFINED DISORDER
     Dosage: 5 MG, QD
     Route: 048
     Dates: start: 19990101
  8. WELLBUTRIN [Concomitant]
     Indication: ILL-DEFINED DISORDER
     Dosage: UNKNOWN
     Route: 048
     Dates: start: 20010101, end: 20040101
  9. KLONOPIN [Concomitant]
     Indication: ILL-DEFINED DISORDER
     Dosage: .5 MG, QD
     Route: 048
     Dates: start: 19990101
  10. DARVOCET [Concomitant]
     Indication: ILL-DEFINED DISORDER
     Dosage: UNKNOWN
     Route: 048
     Dates: start: 19940101

REACTIONS (4)
  - BREAST CANCER [None]
  - BREAST CANCER METASTATIC [None]
  - OESTROGEN RECEPTOR ASSAY POSITIVE [None]
  - PROGESTERONE RECEPTOR ASSAY POSITIVE [None]
